FAERS Safety Report 6295462-1 (Version None)
Quarter: 2009Q3

REPORT INFORMATION
  Report Type: 
  Country: None (occurrence: None)
  Receive Date: 20090730
  Receipt Date: 20090721
  Transmission Date: 20100115
  Serious: Yes (Other)
  Sender: FDA-Public Use
  Company Number: CHNY2009DE02947

PATIENT
  Age: 13 Year
  Sex: Female
  Weight: 41 kg

DRUGS (5)
  1. HYOSCINE HBR HYT [Suspect]
     Indication: SALIVARY HYPERSECRETION
     Dosage: TRANSDERMAL
     Route: 062
     Dates: start: 20090501, end: 20090601
  2. HYOSCINE HBR HYT [Suspect]
     Indication: SALIVARY HYPERSECRETION
     Dosage: TRANSDERMAL
     Route: 062
     Dates: end: 20090701
  3. VALPROIC ACID [Concomitant]
  4. TRILEPTAL [Concomitant]
  5. ANTIALLERGICS (UNSPECIFIED) [Concomitant]

REACTIONS (9)
  - AGITATION [None]
  - APATHY [None]
  - APPLICATION SITE ERYTHEMA [None]
  - CONCOMITANT DISEASE AGGRAVATED [None]
  - CONVULSION [None]
  - DIZZINESS [None]
  - EPILEPSY [None]
  - OFF LABEL USE [None]
  - VOMITING [None]
